FAERS Safety Report 5877191-9 (Version None)
Quarter: 2008Q3

REPORT INFORMATION
  Report Type: 
  Country: None (occurrence: None)
  Receive Date: 20080910
  Receipt Date: 20080901
  Transmission Date: 20090109
  Serious: Yes (Death, Other)
  Sender: FDA-Public Use
  Company Number: CN-PFIZER INC-2008052277

PATIENT
  Sex: Male

DRUGS (1)
  1. SUTENT [Suspect]
     Indication: NON-SMALL CELL LUNG CANCER
     Route: 048
     Dates: start: 20080603, end: 20080618

REACTIONS (5)
  - DISSEMINATED INTRAVASCULAR COAGULATION [None]
  - NAUSEA [None]
  - NEUTROPHIL COUNT DECREASED [None]
  - PLATELET COUNT DECREASED [None]
  - VOMITING [None]
